FAERS Safety Report 7510256-4 (Version None)
Quarter: 2011Q2

REPORT INFORMATION
  Report Type: 
  Country: None (occurrence: None)
  Receive Date: 20110527
  Receipt Date: 20110517
  Transmission Date: 20111010
  Serious: Yes (Other)
  Sender: FDA-Public Use
  Company Number: FR-NOVOPROD-328491

PATIENT
  Age: 63 Year
  Sex: Female

DRUGS (3)
  1. VICTOZA [Suspect]
     Indication: PRODUCT USED FOR UNKNOWN INDICATION
     Dosage: 1.2 MG, QD
     Route: 058
     Dates: end: 20110318
  2. REPAGLINIDE [Concomitant]
     Dosage: UNK
     Dates: start: 20060601
  3. VICTOZA [Suspect]
     Dosage: 1.2 MG, QD
     Route: 058
     Dates: start: 20110408

REACTIONS (4)
  - WITHDRAWAL SYNDROME [None]
  - ASTHENIA [None]
  - TREMOR [None]
  - VOMITING [None]
